FAERS Safety Report 23858063 (Version 1)
Quarter: 2024Q2

REPORT INFORMATION
  Report Type: Spontaneous
  Country: US (occurrence: None)
  Receive Date: 20240514
  Receipt Date: 20240514
  Transmission Date: 20240716
  Serious: Yes (Life-Threatening, Disabling, Other)
  Sender: FDA-Public Use
  Company Number: None

PATIENT
  Age: 46 Year
  Sex: Male
  Weight: 103.14 kg

DRUGS (10)
  1. GABAPENTIN [Suspect]
     Active Substance: GABAPENTIN
     Indication: Neuralgia
     Dosage: OTHER QUANTITY : 300 MG;?OTHER FREQUENCY : 1500MG DAILY;?
     Route: 048
  2. CETIRIZINE HYDROCHLORIDE [Concomitant]
     Active Substance: CETIRIZINE HYDROCHLORIDE
  3. amalodipine [Concomitant]
  4. GABAPENTIN [Concomitant]
     Active Substance: GABAPENTIN
  5. K-TAB [Concomitant]
     Active Substance: POTASSIUM CHLORIDE
  6. LISINOPRIL [Concomitant]
     Active Substance: LISINOPRIL
  7. TYLENOL [Concomitant]
     Active Substance: ACETAMINOPHEN
  8. IBUPROFEN [Concomitant]
     Active Substance: IBUPROFEN
  9. VITAMIN C [Concomitant]
     Active Substance: ASCORBIC ACID
  10. bayer one a day men^s multi vitamin [Concomitant]

REACTIONS (10)
  - Migraine [None]
  - Dizziness [None]
  - Diarrhoea [None]
  - Vomiting [None]
  - Nausea [None]
  - Mood swings [None]
  - Agitation [None]
  - Seizure [None]
  - Dyskinesia [None]
  - Disturbance in attention [None]

NARRATIVE: CASE EVENT DATE: 20240503
